FAERS Safety Report 7492793-4 (Version None)
Quarter: 2011Q2

REPORT INFORMATION
  Report Type: 
  Country: None (occurrence: None)
  Receive Date: 20110519
  Receipt Date: 20110513
  Transmission Date: 20111010
  Serious: No
  Sender: FDA-Public Use
  Company Number: US-BAYER-2011-041534

PATIENT
  Sex: Female

DRUGS (2)
  1. DULERA TABLET [Concomitant]
  2. AVELOX [Suspect]
     Indication: BRONCHITIS
     Dosage: 400 MG, QD
     Route: 048

REACTIONS (3)
  - DIARRHOEA [None]
  - DRY MOUTH [None]
  - DEHYDRATION [None]
